FAERS Safety Report 9920755 (Version 2)
Quarter: 2014Q1

REPORT INFORMATION
  Report Type: Spontaneous
  Country: US (occurrence: US)
  Receive Date: 20140224
  Receipt Date: 20140224
  Transmission Date: 20141002
  Serious: Yes (Disabling)
  Sender: FDA-Public Use
  Company Number: US-GE HEALTHCARE MEDICAL DIAGNOSTICS-OSCN-PR-0805S-0283

PATIENT
  Age: 44 Year
  Sex: Female

DRUGS (2)
  1. OMNISCAN [Suspect]
     Indication: PAIN
     Route: 042
     Dates: start: 20060620, end: 20060620
  2. MULTIHANCE [Suspect]
     Indication: OSTEOMYELITIS
     Route: 042
     Dates: start: 20060706, end: 20060706

REACTIONS (1)
  - Nephrogenic systemic fibrosis [Not Recovered/Not Resolved]
